FAERS Safety Report 21822095 (Version 2)
Quarter: 2023Q1

REPORT INFORMATION
  Report Type: Spontaneous
  Country: US (occurrence: None)
  Receive Date: 20230105
  Receipt Date: 20230215
  Transmission Date: 20230418
  Serious: No
  Sender: FDA-Public Use
  Company Number: 2022A418467

PATIENT
  Age: 64 Year
  Sex: Female

DRUGS (1)
  1. PULMICORT FLEXHALER [Suspect]
     Active Substance: BUDESONIDE
     Dosage: 180.0UG UNKNOWN
     Route: 055

REACTIONS (5)
  - Malaise [Unknown]
  - Device use issue [Unknown]
  - Incorrect dose administered by device [Unknown]
  - Cough [Unknown]
  - Device malfunction [Unknown]
